FAERS Safety Report 15301729 (Version 3)
Quarter: 2018Q3

REPORT INFORMATION
  Report Type: Spontaneous
  Country: DE (occurrence: DE)
  Receive Date: 20180821
  Receipt Date: 20180821
  Transmission Date: 20181010
  Serious: Yes (Other)
  Sender: FDA-Public Use
  Company Number: PHHY2018DE074739

PATIENT
  Age: 95 Year
  Sex: Female
  Weight: 65 kg

DRUGS (4)
  1. PANTOPRAZOL [Suspect]
     Active Substance: PANTOPRAZOLE SODIUM
     Indication: PRODUCT USED FOR UNKNOWN INDICATION
     Dosage: UNK
     Route: 065
  2. IXOTEN [Suspect]
     Active Substance: TROFOSFAMIDE
     Indication: LYMPHOMA
     Dosage: 50 MG, QD (ONCE A DAY IN THE MORNING)
     Route: 065
     Dates: start: 201804, end: 20180626
  3. IXOTEN [Suspect]
     Active Substance: TROFOSFAMIDE
     Dosage: DOSE REINTRODUCED
     Route: 065
  4. PREDNISOLON [Suspect]
     Active Substance: PREDNISOLONE
     Indication: PRODUCT USED FOR UNKNOWN INDICATION
     Dosage: 20 MG, QD
     Route: 065

REACTIONS (9)
  - Cerebrovascular insufficiency [Unknown]
  - Drug administration error [Unknown]
  - Dyspnoea [Recovered/Resolved]
  - Circulatory collapse [Unknown]
  - Cardiac failure [Unknown]
  - Hypersensitivity [Unknown]
  - Memory impairment [Recovered/Resolved]
  - Pleural effusion [Unknown]
  - Fluid intake reduced [Unknown]

NARRATIVE: CASE EVENT DATE: 201804
